FAERS Safety Report 17010129 (Version 1)
Quarter: 2019Q4

REPORT INFORMATION
  Report Type: Spontaneous
  Country: HU (occurrence: HU)
  Receive Date: 20191107
  Receipt Date: 20191107
  Transmission Date: 20200122
  Serious: Yes (Disabling)
  Sender: FDA-Public Use
  Company Number: None

PATIENT
  Age: 31 Year
  Sex: Female
  Weight: 55 kg

DRUGS (1)
  1. LEVOFLOXACIN (KINOLON) [Suspect]
     Active Substance: LEVOFLOXACIN
     Indication: PNEUMONIA
     Route: 048
     Dates: start: 20190411, end: 20190511

REACTIONS (5)
  - Insomnia [None]
  - Dizziness [None]
  - Myalgia [None]
  - Night sweats [None]
  - Heart rate increased [None]

NARRATIVE: CASE EVENT DATE: 20191105
